FAERS Safety Report 24044674 (Version 1)
Quarter: 2024Q3

REPORT INFORMATION
  Report Type: Spontaneous
  Country: US (occurrence: US)
  Receive Date: 20240703
  Receipt Date: 20240703
  Transmission Date: 20241017
  Serious: Yes (Hospitalization, Other)
  Sender: NOVITIUM PHARMA
  Company Number: US-NOVITIUMPHARMA-2024USNVP01128

PATIENT
  Age: 88 Year
  Sex: Female

DRUGS (2)
  1. PREDNISONE [Suspect]
     Active Substance: PREDNISONE
     Indication: Eosinophilic pneumonia chronic
  2. PREDNISONE [Suspect]
     Active Substance: PREDNISONE
     Dosage: TAPERED OFF

REACTIONS (2)
  - Rebound effect [Recovered/Resolved]
  - Atrial fibrillation [Unknown]
